FAERS Safety Report 22063041 (Version 1)
Quarter: 2023Q1

REPORT INFORMATION
  Report Type: Spontaneous
  Country: US (occurrence: US)
  Receive Date: 20230306
  Receipt Date: 20230306
  Transmission Date: 20230417
  Serious: Yes (Hospitalization)
  Sender: FDA-Public Use
  Company Number: US-drreddys-LIT/USA/23/0161766

PATIENT
  Age: 13 Year
  Sex: Female

DRUGS (6)
  1. DOXORUBICIN HYDROCHLORIDE [Suspect]
     Active Substance: DOXORUBICIN HYDROCHLORIDE
     Indication: Round cell liposarcoma
  2. VINCRISTINE [Suspect]
     Active Substance: VINCRISTINE
     Indication: Round cell liposarcoma
  3. CYCLOPHOSPHAMIDE [Suspect]
     Active Substance: CYCLOPHOSPHAMIDE
     Indication: Round cell liposarcoma
  4. IFOSFAMIDE [Suspect]
     Active Substance: IFOSFAMIDE
     Indication: Round cell liposarcoma
  5. ETOPOSIDE [Suspect]
     Active Substance: ETOPOSIDE
     Indication: Round cell liposarcoma
  6. DEXRAZOXANE [Suspect]
     Active Substance: DEXRAZOXANE
     Indication: Round cell liposarcoma

REACTIONS (2)
  - Febrile neutropenia [Unknown]
  - Radiation oesophagitis [Unknown]
